FAERS Safety Report 5249866-6 (Version None)
Quarter: 2007Q1

REPORT INFORMATION
  Report Type: 
  Country: None (occurrence: None)
  Receive Date: 20070228
  Receipt Date: 20070222
  Transmission Date: 20070707
  Serious: Yes (Other)
  Sender: FDA-Public Use
  Company Number: US-AVENTIS-200710512US

PATIENT
  Sex: Male

DRUGS (4)
  1. LANTUS [Suspect]
     Dates: start: 20070112
  2. LANTUS [Suspect]
     Dates: start: 20070101
  3. LANTUS [Suspect]
     Dates: start: 20050201
  4. NOVOLOG [Concomitant]
     Dosage: DOSE: UNK

REACTIONS (6)
  - BLOOD GLUCOSE INCREASED [None]
  - DECREASED APPETITE [None]
  - DRUG INEFFECTIVE [None]
  - KETOSIS [None]
  - MALAISE [None]
  - VOMITING [None]
